FAERS Safety Report 23259162 (Version 1)
Quarter: 2023Q4

REPORT INFORMATION
  Report Type: Spontaneous
  Country: KR (occurrence: KR)
  Receive Date: 20231204
  Receipt Date: 20231204
  Transmission Date: 20240110
  Serious: Yes (Other)
  Sender: FDA-Public Use
  Company Number: KR-SA-2023SA369186

PATIENT
  Age: 32 Year
  Sex: Female

DRUGS (1)
  1. DUPILUMAB [Suspect]
     Active Substance: DUPILUMAB
     Indication: Dermatitis atopic
     Dosage: UNK, QOW

REACTIONS (5)
  - Lymph node tuberculosis [Recovered/Resolved]
  - Lymphadenopathy [Recovered/Resolved]
  - Granuloma [Recovered/Resolved]
  - Necrosis [Recovered/Resolved]
  - Lymphocytic infiltration [Recovered/Resolved]
